FAERS Safety Report 9353298 (Version 1)
Quarter: 2013Q2

REPORT INFORMATION
  Report Type: Spontaneous
  Country: US (occurrence: None)
  Receive Date: 20130617
  Receipt Date: 20130617
  Transmission Date: 20140414
  Serious: Yes (Hospitalization)
  Sender: FDA-Public Use
  Company Number: None

PATIENT
  Age: 73 Year
  Sex: Male

DRUGS (2)
  1. HEPARIN [Suspect]
     Indication: ATRIAL FIBRILLATION
     Dosage: 25000 UNITS UNKNOWN IV
     Route: 042
     Dates: start: 20130202, end: 20130206
  2. WARFARIN [Suspect]
     Indication: ATRIAL FIBRILLATION
     Dosage: 5 GM ONCE PO
     Route: 048
     Dates: start: 20130203

REACTIONS (2)
  - Retroperitoneal haematoma [None]
  - Haemoglobin decreased [None]
